FAERS Safety Report 12307171 (Version 2)
Quarter: 2017Q2

REPORT INFORMATION
  Report Type: Spontaneous
  Country: US (occurrence: US)
  Receive Date: 20160426
  Receipt Date: 20170426
  Transmission Date: 20170830
  Serious: No
  Sender: FDA-Public Use
  Company Number: US-ALKERMES INC.-ALK-2016-000098

PATIENT
  Age: 37 Year
  Sex: Male

DRUGS (1)
  1. VIVITROL [Suspect]
     Active Substance: NALTREXONE
     Indication: DRUG USE DISORDER
     Dosage: 380 MG, QMO
     Route: 030
     Dates: start: 20160107

REACTIONS (10)
  - Feeling abnormal [Unknown]
  - Flat affect [Unknown]
  - Arthralgia [Unknown]
  - Substance use disorder [Unknown]
  - Dependence [Recovered/Resolved]
  - Drug use disorder [Not Recovered/Not Resolved]
  - Lethargy [Unknown]
  - Drug screen positive [Recovered/Resolved]
  - Myalgia [Unknown]
  - Pain [Unknown]

NARRATIVE: CASE EVENT DATE: 201601
